FAERS Safety Report 6992599-6 (Version None)
Quarter: 2010Q3

REPORT INFORMATION
  Report Type: 
  Country: None (occurrence: None)
  Receive Date: 20100917
  Receipt Date: 20100910
  Transmission Date: 20110219
  Serious: Yes (Life-Threatening)
  Sender: FDA-Public Use
  Company Number: FR-ROCHE-726689

PATIENT
  Sex: Male

DRUGS (7)
  1. VALIUM [Suspect]
     Indication: PRODUCT USED FOR UNKNOWN INDICATION
     Route: 048
  2. MEPRONIZINE [Suspect]
     Indication: PRODUCT USED FOR UNKNOWN INDICATION
     Route: 048
  3. EQUANIL [Suspect]
     Indication: PRODUCT USED FOR UNKNOWN INDICATION
     Route: 048
  4. AKINETON [Concomitant]
     Dosage: AKINETON LP
     Route: 048
  5. EFFEXOR [Concomitant]
     Route: 048
  6. ATARAX [Concomitant]
     Route: 048
  7. ZOLPIDEM [Concomitant]
     Dosage: 2 DOSES DAILY
     Route: 048

REACTIONS (1)
  - COMA [None]
